FAERS Safety Report 6748624-0 (Version None)
Quarter: 2010Q2

REPORT INFORMATION
  Report Type: 
  Country: None (occurrence: None)
  Receive Date: 20100601
  Receipt Date: 20100520
  Transmission Date: 20101027
  Serious: Yes (Hospitalization)
  Sender: FDA-Public Use
  Company Number: CA-JNJFOC-20100509330

PATIENT
  Sex: Male
  Weight: 55 kg

DRUGS (2)
  1. REMICADE [Suspect]
     Indication: RHEUMATOID ARTHRITIS
     Route: 042
  2. VITAMIN B-12 [Concomitant]

REACTIONS (6)
  - ANXIETY [None]
  - HYPERSENSITIVITY [None]
  - HYPOAESTHESIA [None]
  - LOWER RESPIRATORY TRACT INFECTION [None]
  - MOVEMENT DISORDER [None]
  - PRURITUS [None]
